FAERS Safety Report 5713803-8 (Version None)
Quarter: 2008Q2

REPORT INFORMATION
  Report Type: 
  Country: None (occurrence: None)
  Receive Date: 20080421
  Receipt Date: 20080128
  Transmission Date: 20081010
  Serious: No
  Sender: FDA-Public Use
  Company Number: 20084607

PATIENT
  Age: 49 Year
  Sex: Female

DRUGS (2)
  1. LIORESAL [Suspect]
     Indication: MUSCLE SPASTICITY
     Dosage: 27.5 MCG, DAILY, INTRATHECAL
     Route: 037
  2. ORAL BACLOFEN [Concomitant]

REACTIONS (8)
  - DRUG HYPERSENSITIVITY [None]
  - GAIT DISTURBANCE [None]
  - HEADACHE [None]
  - INFLAMMATION [None]
  - INFUSION RELATED REACTION [None]
  - MUSCLE SPASMS [None]
  - MUSCULAR WEAKNESS [None]
  - PYREXIA [None]
